FAERS Safety Report 9870982 (Version 1)
Quarter: 2014Q1

REPORT INFORMATION
  Report Type: Spontaneous
  Country: US (occurrence: None)
  Receive Date: 20140203
  Receipt Date: 20140203
  Transmission Date: 20141002
  Serious: Yes (Other)
  Sender: FDA-Public Use
  Company Number: AXC-2014-000064

PATIENT
  Age: 42 Year
  Sex: Female
  Weight: 90.7 kg

DRUGS (15)
  1. RECTIV [Suspect]
     Indication: ANAL FISSURE
     Dosage: 0.75MG BID, RECTAL
     Dates: start: 20140117, end: 20140119
  2. RECTIV [Suspect]
     Indication: PROCTALGIA
     Dosage: 0.75MG BID, RECTAL
     Dates: start: 20140117, end: 20140119
  3. GLUMETZA (METFORMIN HYDROCHLORIDE) [Concomitant]
  4. GABAPENTIN (GABAPENTIN) [Concomitant]
  5. AMLODIPINE (AMLODIPINE) [Concomitant]
  6. HYDROCHLOROTHIAZIDE (HYDROCHLOROTHIAZIDE) [Concomitant]
  7. PRISTIQ (DESVENLAFAXINE SUCCINATE) [Concomitant]
  8. WELLBUTRIN (BUPROPION HYDROCHLORIDE) [Concomitant]
  9. RESTORIL (CHLORMEZANONE) [Concomitant]
  10. TIZANIDINE (TIZANIDINE) [Concomitant]
  11. AMITRIPTYLINE (AMITRIPTYLINE) [Concomitant]
  12. VITAMIN D [Concomitant]
  13. VITAMIN B12 [Concomitant]
  14. NORCO (HYDROCODONE BITARTRATE, PARACETAMOL) [Concomitant]
  15. ALEVE (NAPROXEN SODIUM) [Concomitant]

REACTIONS (7)
  - Migraine [None]
  - Nausea [None]
  - Pain [None]
  - Chills [None]
  - Incoherent [None]
  - Dysarthria [None]
  - Pain [None]
